FAERS Safety Report 7051146-3 (Version None)
Quarter: 2010Q4

REPORT INFORMATION
  Report Type: 
  Country: None (occurrence: None)
  Receive Date: 20101019
  Receipt Date: 20101008
  Transmission Date: 20110411
  Serious: Yes (Hospitalization)
  Sender: FDA-Public Use
  Company Number: US-GENZYME-CLOF-1001262

PATIENT
  Age: 59 Year
  Sex: Female

DRUGS (3)
  1. CLOLAR [Suspect]
     Indication: ACUTE MYELOID LEUKAEMIA
     Dosage: 25 MG/M2, QDX5
     Route: 042
     Dates: start: 20100919, end: 20100923
  2. GRANULOCYTE COLONY STIMULATING FACTOR [Suspect]
     Indication: ACUTE MYELOID LEUKAEMIA
     Dosage: UNK
     Route: 065
     Dates: start: 20100918, end: 20100918
  3. CYTARABINE [Suspect]
     Indication: ACUTE MYELOID LEUKAEMIA
     Dosage: 2 G/M2, QDX5
     Route: 042
     Dates: start: 20100919, end: 20100923

REACTIONS (1)
  - ATRIAL FIBRILLATION [None]
